FAERS Safety Report 6888803-5 (Version None)
Quarter: 2010Q3

REPORT INFORMATION
  Report Type: 
  Country: None (occurrence: None)
  Receive Date: 20100730
  Receipt Date: 20071031
  Transmission Date: 20110219
  Serious: No
  Sender: FDA-Public Use
  Company Number: US-PFIZER INC-2007091798

PATIENT
  Sex: Female
  Weight: 113.4 kg

DRUGS (4)
  1. LIPITOR [Suspect]
     Indication: MYOCARDIAL INFARCTION
     Dates: start: 20030401, end: 20071014
  2. LIPITOR [Suspect]
     Indication: VASCULAR GRAFT
  3. PREVACID [Concomitant]
     Indication: DYSPEPSIA
     Dates: start: 20020101
  4. BENICAR [Concomitant]
     Indication: HYPERTENSION

REACTIONS (2)
  - BLOOD CHOLESTEROL INCREASED [None]
  - PAIN IN EXTREMITY [None]
